FAERS Safety Report 7411045-1 (Version None)
Quarter: 2011Q2

REPORT INFORMATION
  Report Type: 
  Country: None (occurrence: None)
  Receive Date: 20110404
  Receipt Date: 20110318
  Transmission Date: 20111010
  Serious: Yes (Hospitalization, Other)
  Sender: FDA-Public Use
  Company Number: 030078

PATIENT
  Age: 23 Year

DRUGS (4)
  1. LEVETIRACETAM [Suspect]
     Dosage: (1000 MG), (2000 MG), (3000 MG), (4000 MG)
     Dates: start: 20040101, end: 20040101
  2. LEVETIRACETAM [Suspect]
     Dosage: (1000 MG), (2000 MG), (3000 MG), (4000 MG)
     Dates: start: 20040101
  3. LEVETIRACETAM [Suspect]
     Dosage: (1000 MG), (2000 MG), (3000 MG), (4000 MG)
     Dates: start: 20040101, end: 20040101
  4. LAMOTRIGINE [Concomitant]

REACTIONS (4)
  - OVERDOSE [None]
  - PARTIAL SEIZURES [None]
  - DIZZINESS [None]
  - GRAND MAL CONVULSION [None]
